FAERS Safety Report 8818726 (Version 1)
Quarter: 2012Q4

REPORT INFORMATION
  Report Type: 
  Country: FR (occurrence: FR)
  Receive Date: 20121001
  Receipt Date: 20121001
  Transmission Date: 20130627
  Serious: Yes (Other)
  Sender: FDA-Public Use
  Company Number: FR-CELGENEUS-056-21880-12092470

PATIENT
  Sex: Female

DRUGS (1)
  1. REVLIMID [Suspect]
     Indication: MDS
     Route: 048

REACTIONS (3)
  - Hepatocellular injury [Unknown]
  - Lung disorder [Unknown]
  - Pain [Unknown]
